FAERS Safety Report 25245088 (Version 1)
Quarter: 2025Q2

REPORT INFORMATION
  Report Type: Spontaneous
  Country: PK (occurrence: None)
  Receive Date: 20250412
  Receipt Date: 20250412
  Transmission Date: 20250717
  Serious: Yes (unspecified)
  Sender: FDA-CTU
  Company Number: None

PATIENT
  Age: 36 Year
  Sex: Male
  Weight: 85 kg

DRUGS (1)
  1. HERBALS [Suspect]
     Active Substance: HERBALS
     Indication: Dental cleaning
     Route: 048
     Dates: start: 20250402, end: 20250403

REACTIONS (3)
  - Product quality issue [None]
  - Oral infection [None]
  - Mouth ulceration [None]

NARRATIVE: CASE EVENT DATE: 20250402
